FAERS Safety Report 10252692 (Version 1)
Quarter: 2014Q2

REPORT INFORMATION
  Report Type: Spontaneous
  Country: US (occurrence: US)
  Receive Date: 20140623
  Receipt Date: 20140623
  Transmission Date: 20141212
  Serious: Yes (Other)
  Sender: FDA-Public Use
  Company Number: US-ACTAVIS-2014-12919

PATIENT
  Sex: Female

DRUGS (1)
  1. NICOTINE POLACRILEX (REGULAR) (WATSON LABORATORIES) [Suspect]
     Indication: NICOTINE DEPENDENCE
     Dosage: UNK
     Route: 048
     Dates: start: 201402

REACTIONS (5)
  - Suicidal ideation [Unknown]
  - Drug ineffective [Unknown]
  - Incorrect drug administration duration [Unknown]
  - Anxiety [Unknown]
  - Palpitations [Unknown]
